FAERS Safety Report 18875967 (Version 1)
Quarter: 2021Q1

REPORT INFORMATION
  Report Type: Spontaneous
  Country: US (occurrence: US)
  Receive Date: 20210210
  Receipt Date: 20210210
  Transmission Date: 20210420
  Serious: Yes (Other)
  Sender: FDA-Public Use
  Company Number: US-TEVA-2021-US-1876762

PATIENT

DRUGS (1)
  1. BUSPIRONE [Suspect]
     Active Substance: BUSPIRONE HYDROCHLORIDE
     Dosage: 15 MILLIGRAM DAILY; 5 MG 3X DAILY
     Route: 065

REACTIONS (21)
  - Hair disorder [Unknown]
  - Visual impairment [Not Recovered/Not Resolved]
  - Nausea [Unknown]
  - Dry mouth [Unknown]
  - Tinnitus [Unknown]
  - Obsessive-compulsive disorder [Unknown]
  - Sudden onset of sleep [Unknown]
  - Coma [Unknown]
  - Dizziness [Unknown]
  - Thinking abnormal [Unknown]
  - Headache [Unknown]
  - Palpitations [Unknown]
  - Sleep disorder [Unknown]
  - Presyncope [Unknown]
  - Feeling jittery [Unknown]
  - Nervousness [Unknown]
  - Memory impairment [Unknown]
  - Bruxism [Not Recovered/Not Resolved]
  - Irritability [Unknown]
  - Mania [Unknown]
  - Feeling abnormal [Unknown]
